FAERS Safety Report 6293439-3 (Version None)
Quarter: 2009Q3

REPORT INFORMATION
  Report Type: 
  Country: None (occurrence: None)
  Receive Date: 20090803
  Receipt Date: 20090729
  Transmission Date: 20100115
  Serious: Yes (Hospitalization)
  Sender: FDA-Public Use
  Company Number: US-BIOGENIDEC-2009BI021100

PATIENT
  Age: 48 Year
  Sex: Male
  Weight: 99 kg

DRUGS (4)
  1. TYSABRI [Suspect]
     Indication: MULTIPLE SCLEROSIS
     Route: 042
     Dates: start: 20071227
  2. ADVAIR HFA [Concomitant]
     Indication: DYSPNOEA
  3. FLOMAX [Concomitant]
     Indication: URINARY TRACT DISORDER
  4. POLYETHYLENE GLYCOL [Concomitant]
     Indication: GASTROINTESTINAL DISORDER

REACTIONS (3)
  - FALL [None]
  - HIP FRACTURE [None]
  - MEMORY IMPAIRMENT [None]
